FAERS Safety Report 23526621 (Version 1)
Quarter: 2024Q1

REPORT INFORMATION
  Report Type: Spontaneous
  Country: US (occurrence: None)
  Receive Date: 20240214
  Receipt Date: 20240214
  Transmission Date: 20240410
  Serious: Yes (Hospitalization)
  Sender: FDA-Public Use
  Company Number: None

PATIENT
  Age: 62 Year
  Sex: Male

DRUGS (5)
  1. MYCOPHENOLATE MOFETIL [Suspect]
     Active Substance: MYCOPHENOLATE MOFETIL
     Dosage: FREQUENCY : TWICE A DAY;?
     Route: 048
  2. TACROLIMUS [Suspect]
     Active Substance: TACROLIMUS
     Dosage: FREQUENCY : TWICE A DAY;?
     Route: 048
  3. Acyclovir 200 mg [Concomitant]
  4. Nystatin 100,000 unit susp [Concomitant]
  5. Sulfamethoxazole-TMP SS tablet  400-80mg [Concomitant]

REACTIONS (2)
  - Transplant [None]
  - Hypoglycaemia [None]

NARRATIVE: CASE EVENT DATE: 20240213
